FAERS Safety Report 23169273 (Version 5)
Quarter: 2023Q4

REPORT INFORMATION
  Report Type: Report from Study
  Country: FR (occurrence: FR)
  Receive Date: 20231110
  Receipt Date: 20231212
  Transmission Date: 20240109
  Serious: Yes (Hospitalization)
  Sender: FDA-Public Use
  Company Number: FR-SA-SAC20231107000809

PATIENT
  Age: 57 Year
  Sex: Male
  Weight: 99.6 kg

DRUGS (8)
  1. ISATUXIMAB [Suspect]
     Active Substance: ISATUXIMAB
     Indication: Plasma cell myeloma
     Dosage: 980 MG
     Route: 065
     Dates: start: 20221027, end: 20221027
  2. ISATUXIMAB [Suspect]
     Active Substance: ISATUXIMAB
     Dosage: 980 MG
     Route: 065
     Dates: start: 20230911, end: 20230911
  3. CARFILZOMIB [Suspect]
     Active Substance: CARFILZOMIB
     Indication: Plasma cell myeloma
     Dosage: 114 MG
     Dates: start: 20221027, end: 20221027
  4. CARFILZOMIB [Suspect]
     Active Substance: CARFILZOMIB
     Dosage: 114 MG
     Dates: start: 20230918, end: 20230918
  5. LENALIDOMIDE [Suspect]
     Active Substance: LENALIDOMIDE
     Indication: Plasma cell myeloma
     Dosage: UNK
     Dates: start: 20221022, end: 20221022
  6. LENALIDOMIDE [Suspect]
     Active Substance: LENALIDOMIDE
     Dosage: UNK
     Dates: start: 20230918, end: 20230918
  7. DEXAMETHASONE [Suspect]
     Active Substance: DEXAMETHASONE
     Indication: Plasma cell myeloma
     Dosage: 40 MG
     Dates: start: 20221027, end: 20221027
  8. DEXAMETHASONE [Suspect]
     Active Substance: DEXAMETHASONE
     Dosage: 40 MG
     Dates: start: 20230918, end: 20230918

REACTIONS (1)
  - Renal failure [Recovered/Resolved]

NARRATIVE: CASE EVENT DATE: 20230918
